FAERS Safety Report 4789874-2 (Version None)
Quarter: 2005Q3

REPORT INFORMATION
  Report Type: 
  Country: None (occurrence: None)
  Receive Date: 20050914
  Receipt Date: 20041220
  Transmission Date: 20060218
  Serious: Yes (Death)
  Sender: FDA-Public Use
  Company Number: 163-20785-04120515

PATIENT
  Age: 67 Year
  Sex: Female

DRUGS (6)
  1. THALOMID [Suspect]
     Indication: NEOPLASM
     Dosage: 100 MG, DAILY, ORAL
     Route: 048
     Dates: start: 20041210, end: 20041201
  2. ZOLOFT [Concomitant]
  3. LASIX [Concomitant]
  4. HYDROCODONE (HYDROCODONE) [Concomitant]
  5. LEVOTHYROXINE SODIUM [Concomitant]
  6. ACIPHEX [Concomitant]

REACTIONS (2)
  - DEATH [None]
  - SEPSIS [None]
